FAERS Safety Report 15307043 (Version 1)
Quarter: 2018Q3

REPORT INFORMATION
  Report Type: Spontaneous
  Country: US (occurrence: US)
  Receive Date: 20180822
  Receipt Date: 20180822
  Transmission Date: 20181010
  Serious: Yes (Other)
  Sender: FDA-Public Use
  Company Number: US-SA-2018SA169377

PATIENT
  Age: 64 Year
  Sex: Male

DRUGS (3)
  1. AMLODIPINE [Suspect]
     Active Substance: AMLODIPINE BESYLATE
     Indication: BLOOD PRESSURE MANAGEMENT
     Dosage: 5 MG, QD
  2. INDAPAMIDE. [Suspect]
     Active Substance: INDAPAMIDE
     Indication: BLOOD PRESSURE MANAGEMENT
     Dosage: 0.625 MG, QD
  3. LOSARTAN POTASSIUM. [Suspect]
     Active Substance: LOSARTAN POTASSIUM
     Indication: BLOOD PRESSURE MANAGEMENT
     Dosage: 100 MG, QD

REACTIONS (1)
  - Acute kidney injury [Recovered/Resolved]
